FAERS Safety Report 16467854 (Version 2)
Quarter: 2020Q1

REPORT INFORMATION
  Report Type: Spontaneous
  Country: GB (occurrence: GB)
  Receive Date: 20190624
  Receipt Date: 20200321
  Transmission Date: 20200409
  Serious: Yes (Other)
  Sender: FDA-Public Use
  Company Number: GB-TEVA-2019-GB-1067013

PATIENT
  Age: 92 Year
  Sex: Female
  Weight: 73 kg

DRUGS (7)
  1. LACTULOSE. [Concomitant]
     Active Substance: LACTULOSE
     Dosage: 3.1-3.7G/5ML
     Route: 048
     Dates: start: 20170208
  2. DOXAZOSIN [Concomitant]
     Active Substance: DOXAZOSIN MESYLATE
     Dates: start: 20170531
  3. COCODAMOL [Concomitant]
     Active Substance: ACETAMINOPHEN\CODEINE PHOSPHATE
     Indication: ARTHRALGIA
     Dosage: TAKE 1 OR 2 TABLETS FOUR TIMES A DAY. 30MG/500MG
     Dates: start: 20170531
  4. CLOPIDOGREL [Suspect]
     Active Substance: CLOPIDOGREL BISULFATE
     Indication: TRANSIENT ISCHAEMIC ATTACK
     Route: 048
  5. ALLOPURINOL. [Concomitant]
     Active Substance: ALLOPURINOL
     Dates: start: 20170208
  6. RAMIPRIL. [Concomitant]
     Active Substance: RAMIPRIL
     Dates: start: 20170208
  7. FUROSEMIDE. [Concomitant]
     Active Substance: FUROSEMIDE
     Dates: start: 20170208

REACTIONS (6)
  - Contusion [Recovered/Resolved]
  - Rectal haemorrhage [Recovered/Resolved]
  - Gingival bleeding [Recovered/Resolved]
  - Thrombocytopenia [Recovering/Resolving]
  - Epistaxis [Recovered/Resolved]
  - Petechiae [Unknown]

NARRATIVE: CASE EVENT DATE: 20170811
